FAERS Safety Report 5077685-2 (Version None)
Quarter: 2006Q3

REPORT INFORMATION
  Report Type: 
  Country: None (occurrence: None)
  Receive Date: 20060810
  Receipt Date: 20060804
  Transmission Date: 20061208
  Serious: Yes (Other)
  Sender: FDA-Public Use
  Company Number: GB-BOEHRINGER INGELHEIM PHARMACEUTICALS, INC.-2006-BP-09174YA

PATIENT
  Sex: Male

DRUGS (8)
  1. TAMSULOSIN HYDROCHLORIDE [Suspect]
     Indication: BENIGN PROSTATIC HYPERPLASIA
     Route: 048
     Dates: start: 20060301, end: 20060601
  2. FINASTERIDE [Concomitant]
     Route: 065
  3. IMDUR [Concomitant]
     Route: 065
  4. ATORVASTATIN CALCIUM [Concomitant]
     Route: 065
  5. ENALAPRIL MALEATE [Concomitant]
     Route: 065
  6. ASPIRIN [Concomitant]
     Route: 065
  7. LUMIGAN [Concomitant]
     Route: 065
  8. BRINZOLAMIDE [Concomitant]
     Route: 065

REACTIONS (1)
  - EYELID PTOSIS [None]
